FAERS Safety Report 25755195 (Version 1)
Quarter: 2025Q3

REPORT INFORMATION
  Report Type: Spontaneous
  Country: US (occurrence: US)
  Receive Date: 20250903
  Receipt Date: 20250903
  Transmission Date: 20251020
  Serious: No
  Sender: ALEMBIC
  Company Number: US-ALEMBIC PHARMACUETICALS LIMITED-2025SCAL001109

PATIENT

DRUGS (3)
  1. DAPSONE [Suspect]
     Active Substance: DAPSONE
     Indication: Acne
     Route: 061
     Dates: start: 20250814
  2. BENZOYL PEROXIDE [Concomitant]
     Active Substance: BENZOYL PEROXIDE
     Indication: Acne
     Route: 065
     Dates: start: 20250814
  3. SULFACETAMIDE SODIUM [Concomitant]
     Active Substance: SULFACETAMIDE SODIUM
     Indication: Acne
     Route: 065
     Dates: start: 20250814

REACTIONS (2)
  - Product dose omission in error [Unknown]
  - Product container issue [Unknown]

NARRATIVE: CASE EVENT DATE: 20250814
